FAERS Safety Report 6309127-0 (Version None)
Quarter: 2009Q3

REPORT INFORMATION
  Report Type: 
  Country: None (occurrence: None)
  Receive Date: 20090814
  Receipt Date: 20071130
  Transmission Date: 20100115
  Serious: Yes (Hospitalization, Other)
  Sender: FDA-Public Use
  Company Number: US-ASTRAZENECA-2006UW27447

PATIENT
  Age: 16477 Day
  Sex: Female
  Weight: 100.2 kg

DRUGS (25)
  1. SEROQUEL [Suspect]
     Indication: SCHIZOPHRENIA
     Dosage: 25 MG AND 100 MG
     Route: 048
     Dates: start: 20010824, end: 20050530
  2. SEROQUEL [Suspect]
     Indication: DEPRESSION
     Dosage: 25 MG AND 100 MG
     Route: 048
     Dates: start: 20010824, end: 20050530
  3. SEROQUEL [Suspect]
     Indication: ANXIETY
     Dosage: 25 MG AND 100 MG
     Route: 048
     Dates: start: 20010824, end: 20050530
  4. SEROQUEL [Suspect]
     Dosage: 25MG-100MG
     Route: 048
     Dates: start: 20010824
  5. SEROQUEL [Suspect]
     Dosage: 25MG-100MG
     Route: 048
     Dates: start: 20010824
  6. SEROQUEL [Suspect]
     Dosage: 25MG-100MG
     Route: 048
     Dates: start: 20010824
  7. ZYPREXA [Concomitant]
  8. RISPERDAL [Concomitant]
  9. ABILIFY [Concomitant]
  10. HALOPERIDOL [Concomitant]
     Dates: start: 20010401
  11. THORAZINE [Concomitant]
     Dates: start: 20010927
  12. CELEBREX [Concomitant]
     Dates: start: 20050530
  13. CYMBALTA [Concomitant]
     Dosage: STRENGTH 30 MG  DOSE 30MG-60MG
     Dates: start: 20050530
  14. FLEXERIL [Concomitant]
     Dates: start: 20050530
  15. VICODIN [Concomitant]
     Indication: PAIN
     Dosage: STRENGTH 5/500, 7.5/750 DOSE  1 TABLET EVERY 4 TO 6 HOURS AS REQUIRED
     Route: 048
     Dates: start: 20050530
  16. PEPCID [Concomitant]
     Dates: start: 20050530
  17. SINGULAIR [Concomitant]
     Dates: start: 20050530
  18. ALPRAZOLAM [Concomitant]
     Dates: start: 20050530
  19. CLARINEX [Concomitant]
     Dates: start: 20050530
  20. LORAZEPAM [Concomitant]
     Indication: ANXIETY
     Dosage: STRENGTH 1 MG  DOSE 2MG-4MG
     Dates: start: 20050530
  21. PROMETHAZINE [Concomitant]
     Dates: start: 20050530
  22. OXYCODONE [Concomitant]
     Dates: start: 20050530
  23. NEURONTIN [Concomitant]
     Dosage: 300 MG-2400 MG
     Dates: start: 20011211
  24. CENESTIN [Concomitant]
     Dates: start: 20011106
  25. EFFEXOR XR [Concomitant]
     Dates: start: 20010824

REACTIONS (6)
  - BLOOD TRIGLYCERIDES INCREASED [None]
  - DIABETES MELLITUS [None]
  - DIABETIC COMA [None]
  - DIABETIC KETOACIDOSIS [None]
  - NEUROPATHY PERIPHERAL [None]
  - OSTEOARTHRITIS [None]
